FAERS Safety Report 18259152 (Version 10)
Quarter: 2024Q3

REPORT INFORMATION
  Report Type: Spontaneous
  Country: US (occurrence: US)
  Receive Date: 20200911
  Receipt Date: 20240923
  Transmission Date: 20241017
  Serious: Yes (Hospitalization)
  Sender: PFIZER
  Company Number: US-PFIZER INC-2020352103

PATIENT
  Age: 72 Year
  Sex: Female

DRUGS (1)
  1. XELJANZ XR [Suspect]
     Active Substance: TOFACITINIB CITRATE
     Dosage: 11 MG, 1X/DAY
     Route: 048

REACTIONS (8)
  - Rectal haemorrhage [Unknown]
  - Back disorder [Unknown]
  - Seasonal allergy [Unknown]
  - Arthralgia [Unknown]
  - Sinus disorder [Unknown]
  - Osteoporosis [Unknown]
  - Arthritis [Recovering/Resolving]
  - Gait disturbance [Recovering/Resolving]
